FAERS Safety Report 19502805 (Version 1)
Quarter: 2021Q3

REPORT INFORMATION
  Report Type: Report from Study
  Country: CA (occurrence: CA)
  Receive Date: 20210707
  Receipt Date: 20210707
  Transmission Date: 20211014
  Serious: Yes (Death, Life-Threatening, Hospitalization, Other)
  Sender: FDA-Public Use
  Company Number: CA-PFIZER INC-2021753529

PATIENT
  Age: 71 Year
  Sex: Male
  Weight: 118 kg

DRUGS (17)
  1. RITUXIMAB. [Suspect]
     Active Substance: RITUXIMAB
     Indication: RHEUMATOID ARTHRITIS
     Dosage: 1000 MG, 1 EVERY 15 DAYS
     Route: 042
  2. TOCILIZUMAB. [Suspect]
     Active Substance: TOCILIZUMAB
     Dosage: UNK
     Route: 042
  3. ALLOPURINOL. [Concomitant]
     Active Substance: ALLOPURINOL
     Dosage: UNK
  4. BENADRYL [Concomitant]
     Active Substance: DIPHENHYDRAMINE HYDROCHLORIDE
     Dosage: 50 MG
     Route: 048
  5. FOLIC ACID. [Concomitant]
     Active Substance: FOLIC ACID
     Dosage: UNK
  6. METHOTREXATE. [Concomitant]
     Active Substance: METHOTREXATE
     Dosage: UNK
     Route: 058
  7. METHYLPREDNISOLONE SODIUM SUCCINATE. [Concomitant]
     Active Substance: METHYLPREDNISOLONE SODIUM SUCCINATE
     Dosage: 100 MG
     Route: 042
  8. PREDNISONE. [Concomitant]
     Active Substance: PREDNISONE
     Dosage: UNK
  9. MOBICOX [Suspect]
     Active Substance: MELOXICAM
     Indication: RHEUMATOID ARTHRITIS
     Dosage: UNK
  10. TOCILIZUMAB. [Suspect]
     Active Substance: TOCILIZUMAB
     Dosage: 800 MG, MONTHLY (1 EVERY 4 WEEKS)
     Route: 042
  11. TOCILIZUMAB. [Suspect]
     Active Substance: TOCILIZUMAB
     Indication: RHEUMATOID ARTHRITIS
     Dosage: 784 MG, MONTHLY (1 EVERY 4 WEEKS)
     Route: 042
  12. TOCILIZUMAB. [Suspect]
     Active Substance: TOCILIZUMAB
     Dosage: 800 MG, MONTHLY (1 EVERY 4 WEEKS),
     Route: 042
  13. TOCILIZUMAB. [Suspect]
     Active Substance: TOCILIZUMAB
     Dosage: 800 MG, MONTHLY  (1 EVERY 4 WEEKS)
     Route: 042
  14. TOCILIZUMAB. [Suspect]
     Active Substance: TOCILIZUMAB
     Dosage: 764 MG, MONTHLY (1 EVERY 4 WEEKS)
     Route: 042
  15. RISEDRONATE SODIUM. [Concomitant]
     Active Substance: RISEDRONATE SODIUM
     Dosage: UNK
  16. TOCILIZUMAB. [Suspect]
     Active Substance: TOCILIZUMAB
     Indication: RHEUMATOID ARTHRITIS
     Dosage: 784 MG, MONTHLY (1 EVERY 4 WEEKS)
     Route: 042
  17. TYLENOL [Concomitant]
     Active Substance: ACETAMINOPHEN
     Dosage: 650 MG
     Route: 048

REACTIONS (20)
  - Cough [Fatal]
  - Weight increased [Fatal]
  - Cardiac failure [Fatal]
  - Oxygen saturation decreased [Fatal]
  - Pulmonary oedema [Fatal]
  - Pain [Fatal]
  - Pain in extremity [Fatal]
  - Cartilage injury [Fatal]
  - Hypertension [Fatal]
  - Throat irritation [Fatal]
  - Colon cancer [Fatal]
  - Gait disturbance [Fatal]
  - Hepatic cancer [Fatal]
  - Infusion related reaction [Fatal]
  - Pleural effusion [Fatal]
  - Pericardial effusion [Fatal]
  - Throat lesion [Fatal]
  - Gastrointestinal disorder [Fatal]
  - Small intestinal obstruction [Fatal]
  - Arthralgia [Fatal]
